FAERS Safety Report 16867261 (Version 1)
Quarter: 2019Q4

REPORT INFORMATION
  Report Type: Spontaneous
  Country: US (occurrence: US)
  Receive Date: 20190929
  Receipt Date: 20190929
  Transmission Date: 20200122
  Serious: Yes (Life-Threatening, Other)
  Sender: FDA-Public Use
  Company Number: None

PATIENT
  Age: 31 Year
  Sex: Male
  Weight: 114.75 kg

DRUGS (11)
  1. METHYLPHENIDATE 36MG ER OSM TABLET [Suspect]
     Active Substance: METHYLPHENIDATE
     Indication: ATTENTION DEFICIT/HYPERACTIVITY DISORDER
     Dosage: ?          QUANTITY:1 TABLET(S);?
     Route: 048
     Dates: start: 20190701, end: 20190929
  2. PROZAC [Concomitant]
     Active Substance: FLUOXETINE HYDROCHLORIDE
  3. VITAMIN B12 [Concomitant]
     Active Substance: CYANOCOBALAMIN
  4. ALLEGRA [Concomitant]
     Active Substance: FEXOFENADINE HYDROCHLORIDE
  5. NEXIUM [Concomitant]
     Active Substance: ESOMEPRAZOLE MAGNESIUM
  6. MELATONIN [Concomitant]
     Active Substance: MELATONIN
  7. PROBIOTIC/FIBER GUMMY MULTIVITAMIN [Concomitant]
  8. METHYLPHENIDATE 36MG ER OSM TABLET [Suspect]
     Active Substance: METHYLPHENIDATE
     Indication: ANXIETY
     Dosage: ?          QUANTITY:1 TABLET(S);?
     Route: 048
     Dates: start: 20190701, end: 20190929
  9. LAMOTRIGINE. [Concomitant]
     Active Substance: LAMOTRIGINE
  10. TRAZODONE [Concomitant]
     Active Substance: TRAZODONE HYDROCHLORIDE
  11. CLONAZEPAM. [Concomitant]
     Active Substance: CLONAZEPAM

REACTIONS (6)
  - Product substitution issue [None]
  - Loss of personal independence in daily activities [None]
  - Dissociation [None]
  - Depression [None]
  - Mental impairment [None]
  - Suicidal ideation [None]

NARRATIVE: CASE EVENT DATE: 20190701
